FAERS Safety Report 9676466 (Version 2)
Quarter: 2014Q2

REPORT INFORMATION
  Report Type: Spontaneous
  Country: US (occurrence: US)
  Receive Date: 20131107
  Receipt Date: 20140404
  Transmission Date: 20141212
  Serious: Yes (Other)
  Sender: FDA-Public Use
  Company Number: US-PFIZER INC-2013315567

PATIENT
  Age: 49 Year
  Sex: Female
  Weight: 51.7 kg

DRUGS (1)
  1. LEVOXYL [Suspect]
     Indication: HYPOTHYROIDISM
     Dosage: 75 UG, 1X/DAY
     Dates: start: 2010, end: 201304

REACTIONS (5)
  - Hyperthyroidism [Unknown]
  - Fatigue [Unknown]
  - Malaise [Unknown]
  - Blood thyroid stimulating hormone increased [Unknown]
  - Drug ineffective [Unknown]
